FAERS Safety Report 5979524-1 (Version None)
Quarter: 2008Q4

REPORT INFORMATION
  Report Type: 
  Country: None (occurrence: None)
  Receive Date: 20081204
  Receipt Date: 20081203
  Transmission Date: 20090506
  Serious: Yes (Death)
  Sender: FDA-Public Use
  Company Number: AU-B.I. PHARMACEUTICALS,INC./RIDGEFIELD-2008-BP-17979AU

PATIENT
  Age: 71 Year
  Sex: Female

DRUGS (2)
  1. SIFROL [Suspect]
     Indication: PROGRESSIVE SUPRANUCLEAR PALSY
     Dosage: 4.5MG
     Route: 048
     Dates: start: 20080801
  2. CABASER [Concomitant]
     Indication: PROGRESSIVE SUPRANUCLEAR PALSY
     Dates: end: 20080801

REACTIONS (1)
  - DEATH [None]
